FAERS Safety Report 17985062 (Version 1)
Quarter: 2020Q3

REPORT INFORMATION
  Report Type: Spontaneous
  Country: CN (occurrence: CN)
  Receive Date: 20200706
  Receipt Date: 20200706
  Transmission Date: 20201103
  Serious: Yes (Hospitalization)
  Sender: FDA-Public Use
  Company Number: CN-GLAXOSMITHKLINE-CN2020117936

PATIENT
  Age: 84 Year
  Sex: Male

DRUGS (2)
  1. VOTALIN (DICLOFENAC DIETHYLAMMONIUM SALT) [Concomitant]
     Active Substance: DICLOFENAC DIETHYLAMINE
     Indication: OSTEOARTHRITIS
     Dosage: 1 G, TID
     Route: 065
     Dates: start: 20200602, end: 20200604
  2. VOTALIN [Suspect]
     Active Substance: DICLOFENAC SODIUM
     Indication: OSTEOARTHRITIS
     Dosage: 1 DF, TID
     Route: 048
     Dates: start: 20200601, end: 20200604

REACTIONS (2)
  - Dizziness [Recovering/Resolving]
  - Headache [Recovering/Resolving]

NARRATIVE: CASE EVENT DATE: 20200604
